FAERS Safety Report 20322452 (Version 1)
Quarter: 2022Q1

REPORT INFORMATION
  Report Type: Spontaneous
  Country: US (occurrence: US)
  Receive Date: 20220111
  Receipt Date: 20220111
  Transmission Date: 20220423
  Serious: No
  Sender: FDA-Public Use
  Company Number: US-ABBVIE-21K-163-4123798-00

PATIENT
  Sex: Male
  Weight: 86.260 kg

DRUGS (26)
  1. DUOPA [Suspect]
     Active Substance: CARBIDOPA\LEVODOPA
     Indication: Parkinson^s disease
     Route: 050
     Dates: start: 201911
  2. DUOPA [Suspect]
     Active Substance: CARBIDOPA\LEVODOPA
  3. Rytary (NON-ABBVIE) [Concomitant]
     Indication: Parkinson^s disease
  4. Ropinirole (NON-ABBVIE) [Concomitant]
     Indication: Parkinson^s disease
  5. Amantadine (NON-ABBVIE) [Concomitant]
     Indication: Parkinson^s disease
  6. Baclofen (NON-ABBVIE) [Concomitant]
     Indication: Parkinson^s disease
  7. Bupropion (NON-ABBVIE) [Concomitant]
     Indication: Depression
  8. Duoxetine (NON-ABBVIE) [Concomitant]
     Indication: Depression
  9. LORAZEPAM [Concomitant]
     Active Substance: LORAZEPAM
     Indication: Anxiety
  10. Clonazepam (NON-ABBVIE) [Concomitant]
     Indication: Anxiety
  11. Quetiapine (NON-ABBVIE) [Concomitant]
     Indication: Anxiety
  12. Nuplazid (NON-ABBVIE) [Concomitant]
     Indication: Parkinson^s disease psychosis
  13. Metformin (NON-ABBVIE) [Concomitant]
     Indication: Diabetes mellitus
  14. Teojeo (NON-ABBVIE) [Concomitant]
     Indication: Diabetes mellitus
  15. Humalog (NON-ABBVIE) [Concomitant]
     Indication: Diabetes mellitus
  16. Gabapentin (NON-ABBVIE) [Concomitant]
     Indication: Pain
  17. Metoprolol (NON-ABBVIE) [Concomitant]
     Indication: Cardiac disorder
  18. Omeprazole (NON-ABBVIE) [Concomitant]
     Indication: Gastrooesophageal reflux disease
  19. Simvastatin (NON-ABBVIE) [Concomitant]
     Indication: Blood cholesterol increased
  20. Tamsulosin (NON-ABBVIE) [Concomitant]
     Indication: Micturition disorder
  21. Oxybutinin (NON-ABBVIE) [Concomitant]
     Indication: Micturition disorder
  22. Cialis  (NON-ABBVIE) [Concomitant]
     Indication: Erectile dysfunction
  23. Testosterone  (NON-ABBVIE) [Concomitant]
     Indication: Blood testosterone decreased
  24. Covid 19 Vaccine  (NON-ABBVIE) [Concomitant]
     Indication: Product used for unknown indication
     Dosage: PFIZER
     Route: 030
     Dates: start: 20210128, end: 20210128
  25. Covid 19 Vaccine  (NON-ABBVIE) [Concomitant]
     Dosage: PFIZER
     Route: 030
     Dates: start: 20210222, end: 20210222
  26. Covid 19 Vaccine  (NON-ABBVIE) [Concomitant]
     Dosage: PFIZER
     Route: 030
     Dates: start: 20210831, end: 20210831

REACTIONS (3)
  - Device difficult to use [Recovered/Resolved]
  - Device dislocation [Unknown]
  - Device kink [Unknown]

NARRATIVE: CASE EVENT DATE: 20210101
